FAERS Safety Report 21047082 (Version 2)
Quarter: 2022Q3

REPORT INFORMATION
  Report Type: Report from Study
  Country: BR (occurrence: BR)
  Receive Date: 20220706
  Receipt Date: 20220721
  Transmission Date: 20221026
  Serious: Yes (Other)
  Sender: FDA-Public Use
  Company Number: BR-NOVARTISPH-NVSC2021BR027186

PATIENT
  Age: 46 Year
  Sex: Female
  Weight: 62 kg

DRUGS (5)
  1. COSENTYX [Suspect]
     Active Substance: SECUKINUMAB
     Indication: Ankylosing spondylitis
     Dosage: 150 MG, QMO
     Route: 058
     Dates: start: 20200320
  2. COSENTYX [Suspect]
     Active Substance: SECUKINUMAB
     Dosage: UNK
     Route: 058
     Dates: start: 20210116
  3. COSENTYX [Suspect]
     Active Substance: SECUKINUMAB
     Dosage: UNK
     Route: 065
     Dates: start: 20220701
  4. IBUPROFEN [Concomitant]
     Active Substance: IBUPROFEN
     Indication: Inflammation
     Dosage: UNK (WHEN NECESSARY) (STARTED ABOUT 7 OR 8 DAYS)
     Route: 048
  5. NIMESULIDE [Concomitant]
     Active Substance: NIMESULIDE
     Indication: Inflammation
     Dosage: UNK (WHEN NECESSARY) (STARTED ABOUT 7 OR 8 DAYS)
     Route: 065

REACTIONS (5)
  - Uveitis [Not Recovered/Not Resolved]
  - Infection [Unknown]
  - COVID-19 [Recovered/Resolved]
  - Anosmia [Recovered/Resolved]
  - Headache [Recovered/Resolved]

NARRATIVE: CASE EVENT DATE: 20201218
